FAERS Safety Report 6184495-1 (Version None)
Quarter: 2009Q2

REPORT INFORMATION
  Report Type: 
  Country: None (occurrence: None)
  Receive Date: 20090508
  Receipt Date: 20090428
  Transmission Date: 20091009
  Serious: Yes (Hospitalization)
  Sender: FDA-Public Use
  Company Number: ES-NOVOPROD-286660

PATIENT
  Age: 89 Year
  Sex: Female

DRUGS (10)
  1. NOVOMIX 30 FLEXPEN [Suspect]
     Indication: DRUG USE FOR UNKNOWN INDICATION
  2. ZOLPIDEM [Concomitant]
     Dosage: 10 MG, QD
     Route: 048
     Dates: start: 20070101
  3. LOSARTAN [Concomitant]
     Dosage: 100 MG, QD
     Route: 048
     Dates: start: 20070101
  4. DIGOXIN [Concomitant]
     Dosage: .25 MG, QD
     Route: 048
     Dates: start: 20070101
  5. ENOXAPARIN SODIUM [Concomitant]
     Dosage: 40 MG, QD
     Route: 030
     Dates: start: 20090125
  6. METFORMIN HCL [Concomitant]
     Dosage: 2.5 G, QD
     Route: 048
     Dates: start: 20080101
  7. CLARITROMICINA [Concomitant]
     Dosage: 1 G, QD
     Route: 048
     Dates: start: 20090125
  8. AMLODIPINO                         /00972402/ [Concomitant]
     Dosage: 5 MG, QD
     Route: 048
     Dates: start: 20070101
  9. TORSEMIDE [Concomitant]
     Dosage: 10 MG, QD
     Route: 048
     Dates: start: 20070101
  10. CEFTRIAXONA                        /00672202/ [Concomitant]
     Dosage: 2 G, QD
     Route: 042
     Dates: start: 20090125

REACTIONS (4)
  - BLOOD GLUCOSE INCREASED [None]
  - CARDIAC FAILURE [None]
  - HYPOGLYCAEMIA [None]
  - PNEUMONIA [None]
